FAERS Safety Report 13098328 (Version 2)
Quarter: 2017Q1

REPORT INFORMATION
  Report Type: Report from Study
  Country: US (occurrence: US)
  Receive Date: 20170109
  Receipt Date: 20170131
  Transmission Date: 20170428
  Serious: Yes (Other)
  Sender: FDA-Public Use
  Company Number: US-GILEAD-2017-0252072

PATIENT
  Age: 57 Year
  Sex: Female
  Weight: 73.16 kg

DRUGS (5)
  1. AZATHIOPRINE. [Concomitant]
     Active Substance: AZATHIOPRINE
  2. CARVILOL [Concomitant]
  3. AMBRISENTAN [Suspect]
     Active Substance: AMBRISENTAN
     Indication: PRODUCT USED FOR UNKNOWN INDICATION
     Dosage: 5 MG, QD
     Route: 065
  4. ADCIRCA [Concomitant]
     Active Substance: TADALAFIL
  5. METOLAZONE. [Concomitant]
     Active Substance: METOLAZONE

REACTIONS (1)
  - Deafness unilateral [Not Recovered/Not Resolved]

NARRATIVE: CASE EVENT DATE: 20160913
